FAERS Safety Report 8185916-5 (Version None)
Quarter: 2012Q1

REPORT INFORMATION
  Report Type: 
  Country: None (occurrence: None)
  Receive Date: 20120305
  Receipt Date: 20120224
  Transmission Date: 20120608
  Serious: Yes (Other)
  Sender: FDA-Public Use
  Company Number: BR-ASTRAZENECA-2011SE42888

PATIENT
  Age: 59 Year
  Sex: Male
  Weight: 75 kg

DRUGS (4)
  1. VASLIP [Suspect]
     Indication: HYPERCHOLESTEROLAEMIA
     Dosage: ONCE DAILY
     Route: 048
     Dates: start: 20110101, end: 20110701
  2. CRESTOR [Suspect]
     Indication: HYPERCHOLESTEROLAEMIA
     Route: 048
     Dates: start: 20081101, end: 20110101
  3. ATACAND HCT [Suspect]
     Indication: HYPERTENSION
     Dosage: 16+12.5 MG ONCE DAILY
     Route: 048
     Dates: start: 20071101
  4. ASPIRIN [Concomitant]
     Route: 048
     Dates: start: 20081101

REACTIONS (6)
  - ALANINE AMINOTRANSFERASE INCREASED [None]
  - DIZZINESS [None]
  - HYPERCHOLESTEROLAEMIA [None]
  - HYPOAESTHESIA [None]
  - ERECTILE DYSFUNCTION [None]
  - PRURITUS GENERALISED [None]
